FAERS Safety Report 8182250-4 (Version None)
Quarter: 2012Q1

REPORT INFORMATION
  Report Type: 
  Country: None (occurrence: None)
  Receive Date: 20120302
  Receipt Date: 20120227
  Transmission Date: 20120608
  Serious: Yes (Death, Hospitalization, Other)
  Sender: FDA-Public Use
  Company Number: PHHY2011RS70672

PATIENT
  Sex: Male
  Weight: 80.5 kg

DRUGS (12)
  1. GLEEVEC [Suspect]
     Dosage: DAILY DOSE WAS 400 MG
     Route: 065
     Dates: start: 20110610, end: 20110617
  2. FRAXIPARIN [Concomitant]
     Dosage: UNK UKN, UNK
     Route: 065
  3. PRILENAP [Concomitant]
     Dosage: 40 MG DAILY
     Dates: start: 20110610, end: 20110618
  4. GLUFORMIN [Concomitant]
     Dosage: 2 G ORALLY DAILY
     Dates: start: 20110610, end: 20110618
  5. PLAVIX [Concomitant]
     Dosage: UNK UKN, UNK
     Route: 065
  6. DIPRIAN [Concomitant]
     Dosage: 320 MG DAILY DOSE
     Route: 065
     Dates: start: 20110610, end: 20110618
  7. NYSTATIN [Concomitant]
     Dosage: SOL. DOSE 60 DROPS DAILY
     Dates: start: 20110610, end: 20110618
  8. GLEEVEC [Suspect]
     Indication: GASTROINTESTINAL STROMAL TUMOUR
     Dosage: UNK UKN, UNK
     Route: 065
  9. ANTICOAGULANTS [Concomitant]
     Dosage: UNK UKN, UNK
     Route: 065
  10. ISOSORBIDE DINITRATE [Concomitant]
     Dosage: UNK UKN, UNK
     Route: 065
  11. METOPROLOL SUCCINATE [Concomitant]
     Dosage: UNK UKN, UNK
     Route: 065
  12. NOLPAZA (PANTOPRAZOLE SODIUM) [Concomitant]
     Dosage: 40 MG ORALLY DAILY
     Dates: start: 20110610, end: 20110618

REACTIONS (7)
  - BLOOD CREATINE PHOSPHOKINASE INCREASED [None]
  - ABDOMINAL PAIN UPPER [None]
  - BLOOD CREATINE PHOSPHOKINASE MB INCREASED [None]
  - MYOCARDIAL INFARCTION [None]
  - ASCITES [None]
  - TROPONIN INCREASED [None]
  - DYSPNOEA [None]
